FAERS Safety Report 8452712-0 (Version None)
Quarter: 2012Q2

REPORT INFORMATION
  Report Type: 
  Country: None (occurrence: None)
  Receive Date: 20120620
  Receipt Date: 20120613
  Transmission Date: 20120825
  Serious: Yes (Hospitalization)
  Sender: FDA-Public Use
  Company Number: SE-NAPPMUNDI-GBR-2012-0010811

PATIENT
  Sex: Male

DRUGS (10)
  1. ACETAMINOPHEN [Concomitant]
     Dosage: 500 MG, UNK
  2. BETOLVIDON [Concomitant]
     Dosage: 1 MG, UNK
  3. FOLACIN                            /00024201/ [Concomitant]
     Dosage: 5 MG, UNK
  4. DIGOXIN [Concomitant]
     Dosage: 0.13 MG, UNK
  5. LAKTULOS [Concomitant]
     Dosage: 670 MG/ML, UNK
     Route: 048
  6. NORSPAN 10 MIKROGRAM/ TIMME DEPOTPLASTER [Suspect]
     Indication: PAIN
     Dosage: 10 MCG, Q1H
     Route: 062
     Dates: end: 20120417
  7. AKINETON [Concomitant]
     Dosage: 2 MG, UNK
  8. POTASSIUM CHLORIDE [Concomitant]
     Dosage: 750 MG, UNK
  9. NOZINAN                            /00038601/ [Concomitant]
     Dosage: 25 MG, UNK
  10. RISPERIDONE [Concomitant]
     Dosage: UNK, UNK

REACTIONS (2)
  - LOSS OF CONSCIOUSNESS [None]
  - FALL [None]
